FAERS Safety Report 4679158-5 (Version None)
Quarter: 2005Q2

REPORT INFORMATION
  Report Type: 
  Country: None (occurrence: None)
  Receive Date: 20050505
  Receipt Date: 20050311
  Transmission Date: 20051028
  Serious: Yes (Other)
  Sender: FDA-Public Use
  Company Number: 004350

PATIENT
  Age: 22 Year
  Sex: Female

DRUGS (4)
  1. CLARAVIS [Suspect]
     Indication: ACNE
     Dosage: 40.00 MG, QD, ORAL,40.00 MG, QOD, ORAL, 80 MG QOD ORAL,  ORAL, 80 MG QD ORAL,
     Route: 048
     Dates: start: 20040929, end: 20041001
  2. CLARAVIS [Suspect]
     Indication: ACNE
     Dosage: 40.00 MG, QD, ORAL,40.00 MG, QOD, ORAL, 80 MG QOD ORAL,  ORAL, 80 MG QD ORAL,
     Route: 048
     Dates: start: 20041001, end: 20041123
  3. CLARAVIS [Suspect]
     Indication: ACNE
     Dosage: 40.00 MG, QD, ORAL,40.00 MG, QOD, ORAL, 80 MG QOD ORAL,  ORAL, 80 MG QD ORAL,
     Route: 048
     Dates: start: 20041001, end: 20041123
  4. CLARAVIS [Suspect]
     Indication: ACNE
     Dosage: 40.00 MG, QD, ORAL,40.00 MG, QOD, ORAL, 80 MG QOD ORAL,  ORAL, 80 MG QD ORAL,
     Route: 048
     Dates: start: 20041124, end: 20050101

REACTIONS (1)
  - UNINTENDED PREGNANCY [None]
